FAERS Safety Report 7065396-3 (Version None)
Quarter: 2010Q4

REPORT INFORMATION
  Report Type: 
  Country: None (occurrence: None)
  Receive Date: 20101027
  Receipt Date: 20101018
  Transmission Date: 20110411
  Serious: No
  Sender: FDA-Public Use
  Company Number: US-ROXANE LABORATORIES, INC.-2010-RO-01394RO

PATIENT
  Sex: Female

DRUGS (2)
  1. BUTORPHANOL TARTRATE [Suspect]
     Indication: MIGRAINE
     Route: 045
     Dates: start: 20090603
  2. FIORICET [Concomitant]
     Indication: MIGRAINE

REACTIONS (3)
  - DRUG INEFFECTIVE [None]
  - NAUSEA [None]
  - VOMITING [None]
